FAERS Safety Report 4520530-1 (Version None)
Quarter: 2004Q4

REPORT INFORMATION
  Report Type: 
  Country: None (occurrence: None)
  Receive Date: 20041207
  Receipt Date: 20041127
  Transmission Date: 20050328
  Serious: Yes (Other)
  Sender: FDA-Public Use
  Company Number: BE-ABBOTT-04P-013-0281737-00

PATIENT
  Sex: Male
  Weight: 93 kg

DRUGS (7)
  1. REDUCTIL [Interacting]
     Indication: WEIGHT DECREASED
     Dates: start: 20030801
  2. LIPANTHYL [Suspect]
     Indication: DYSLIPIDAEMIA
     Route: 048
     Dates: start: 20030226, end: 20040618
  3. CIALIS ^LILLY^ [Concomitant]
     Indication: ERECTILE DYSFUNCTION
     Dates: start: 20040301
  4. METFORMIN HCL [Concomitant]
     Indication: DIABETES MELLITUS
     Dates: start: 20021104, end: 20040618
  5. ORLISTAT [Concomitant]
     Indication: WEIGHT DECREASED
  6. LISINOPRIL [Concomitant]
     Indication: HYPERTENSION
     Dates: start: 20030521, end: 20031201
  7. RAMIPRIL [Concomitant]
     Indication: HYPERTENSION
     Dates: start: 20031201

REACTIONS (7)
  - ALANINE AMINOTRANSFERASE INCREASED [None]
  - ASPARTATE AMINOTRANSFERASE INCREASED [None]
  - BLOOD CREATINE PHOSPHOKINASE INCREASED [None]
  - BLOOD LACTATE DEHYDROGENASE INCREASED [None]
  - DRUG INTERACTION [None]
  - GAMMA-GLUTAMYLTRANSFERASE INCREASED [None]
  - HEPATIC ENZYME INCREASED [None]
